FAERS Safety Report 20375299 (Version 1)
Quarter: 2022Q1

REPORT INFORMATION
  Report Type: Spontaneous
  Country: JP (occurrence: JP)
  Receive Date: 20220125
  Receipt Date: 20220125
  Transmission Date: 20220423
  Serious: Yes (Death, Other)
  Sender: FDA-Public Use
  Company Number: JP-UCBSA-2021056532

PATIENT
  Age: 64 Year
  Sex: Female

DRUGS (1)
  1. NEUPRO [Suspect]
     Active Substance: ROTIGOTINE
     Indication: Product used for unknown indication
     Dosage: 16 MILLIGRAM, ONCE DAILY (QD)
     Route: 062

REACTIONS (6)
  - Condition aggravated [Fatal]
  - Parkinson^s disease [Unknown]
  - Neoplasm malignant [Unknown]
  - Disease progression [Unknown]
  - Dysphagia [Unknown]
  - Treatment noncompliance [Unknown]
